FAERS Safety Report 6993503-7 (Version None)
Quarter: 2010Q3

REPORT INFORMATION
  Report Type: 
  Country: None (occurrence: None)
  Receive Date: 20100917
  Receipt Date: 20100609
  Transmission Date: 20110219
  Serious: No
  Sender: FDA-Public Use
  Company Number: US-ASTRAZENECA-2010SE26229

PATIENT
  Age: 61 Year
  Sex: Female
  Weight: 72.6 kg

DRUGS (16)
  1. SEROQUEL [Suspect]
     Indication: NERVOUSNESS
     Route: 048
     Dates: start: 20070101, end: 20100401
  2. SEROQUEL [Suspect]
     Indication: DISTURBANCE IN ATTENTION
     Route: 048
     Dates: start: 20070101, end: 20100401
  3. SEROQUEL [Suspect]
     Indication: BIPOLAR DISORDER
     Route: 048
     Dates: start: 20070101, end: 20100401
  4. SEROQUEL [Suspect]
     Indication: OBSESSIVE-COMPULSIVE DISORDER
     Route: 048
     Dates: start: 20070101, end: 20100401
  5. SEROQUEL [Suspect]
     Indication: DEPRESSION
     Route: 048
     Dates: start: 20070101, end: 20100401
  6. SEROQUEL [Suspect]
     Indication: ANXIETY
     Route: 048
     Dates: start: 20070101, end: 20100401
  7. NEURONTIN [Concomitant]
  8. PAXIL [Concomitant]
  9. LIPITOR [Concomitant]
     Indication: BLOOD CHOLESTEROL
  10. AMBIEN [Concomitant]
     Indication: INSOMNIA
  11. LUNESTA [Concomitant]
     Indication: INSOMNIA
  12. ATIVAN [Concomitant]
     Dosage: PRN
  13. RESTASIS [Concomitant]
     Indication: STEVENS-JOHNSON SYNDROME
  14. HUMIRA [Concomitant]
     Indication: CROHN'S DISEASE
  15. TRAZODONE HCL [Concomitant]
  16. PREMPRO [Concomitant]

REACTIONS (10)
  - ANXIETY [None]
  - BLOOD GLUCOSE INCREASED [None]
  - CROHN'S DISEASE [None]
  - CRYING [None]
  - FEELING ABNORMAL [None]
  - FOOD CRAVING [None]
  - HYPOMANIA [None]
  - INCREASED APPETITE [None]
  - PANIC ATTACK [None]
  - WEIGHT INCREASED [None]
